FAERS Safety Report 6606455-6 (Version None)
Quarter: 2010Q1

REPORT INFORMATION
  Report Type: 
  Country: None (occurrence: None)
  Receive Date: 20100226
  Receipt Date: 20100215
  Transmission Date: 20100710
  Serious: Yes (Other)
  Sender: FDA-Public Use
  Company Number: PHHY2010JP09473

PATIENT
  Sex: Male
  Weight: 84 kg

DRUGS (12)
  1. DIOVAN [Suspect]
     Indication: HYPERTENSION
     Dosage: 80 MG, BID
     Route: 048
     Dates: start: 20090630, end: 20090804
  2. DIOVAN [Suspect]
     Dosage: 160 MG, BID
     Route: 048
     Dates: start: 20090805, end: 20090920
  3. TIZANIDINE HCL [Concomitant]
     Dosage: 3 MG
     Route: 048
     Dates: start: 20090624, end: 20090826
  4. METHYCOBAL [Concomitant]
     Dosage: 1500 MICRO GM
     Route: 048
     Dates: start: 20090624, end: 20090826
  5. ALINAMIN F [Concomitant]
     Dosage: 150 MG
     Route: 048
     Dates: start: 20090624, end: 20090826
  6. PLAVIX [Concomitant]
     Dosage: 75 MG
     Route: 048
     Dates: start: 20090630, end: 20090826
  7. ALEVIATIN [Concomitant]
     Dosage: 250 MG
     Route: 048
     Dates: start: 20090827
  8. RINDERON [Concomitant]
     Dosage: 0.5 MG
     Route: 048
     Dates: start: 20090901, end: 20090910
  9. GASTER [Concomitant]
     Dosage: 40 MG
     Route: 048
     Dates: start: 20090901, end: 20090910
  10. MUCOSTA [Concomitant]
     Dosage: 3 DF
     Route: 048
     Dates: start: 20090909
  11. CARBAMAZEPINE [Concomitant]
     Dosage: 400 MG
     Route: 048
     Dates: start: 20090909
  12. CERCINE [Concomitant]
     Dosage: 3 MG
     Route: 048
     Dates: start: 20090909

REACTIONS (1)
  - BLOOD PRESSURE DECREASED [None]
